FAERS Safety Report 15807517 (Version 1)
Quarter: 2019Q1

REPORT INFORMATION
  Report Type: Spontaneous
  Country: US (occurrence: US)
  Receive Date: 20190110
  Receipt Date: 20190110
  Transmission Date: 20190417
  Serious: Yes (Hospitalization)
  Sender: FDA-Public Use
  Company Number: None

PATIENT
  Age: 79 Year
  Sex: Male
  Weight: 70.65 kg

DRUGS (1)
  1. ROSUVASTATIN CALCIUM (5 MG) [Suspect]
     Active Substance: ROSUVASTATIN CALCIUM
     Indication: BLOOD CHOLESTEROL INCREASED
     Dosage: ?          QUANTITY:1 TABLET(S);?
     Route: 048
     Dates: start: 20181121, end: 20181217

REACTIONS (12)
  - Constipation [None]
  - Decreased appetite [None]
  - Somnolence [None]
  - Peripheral swelling [None]
  - Fatigue [None]
  - Myalgia [None]
  - Headache [None]
  - Dizziness [None]
  - Abdominal pain [None]
  - Insomnia [None]
  - Pain in extremity [None]
  - Dyspnoea [None]

NARRATIVE: CASE EVENT DATE: 20181220
